FAERS Safety Report 6404610-1 (Version None)
Quarter: 2009Q4

REPORT INFORMATION
  Report Type: 
  Country: None (occurrence: None)
  Receive Date: 20091016
  Receipt Date: 20091007
  Transmission Date: 20100525
  Serious: Yes (Hospitalization)
  Sender: FDA-Public Use
  Company Number: DE-ELI_LILLY_AND_COMPANY-DE200910001369

PATIENT
  Age: 79 Year
  Sex: Female

DRUGS (5)
  1. FORTEO [Suspect]
     Indication: OSTEOPOROSIS
     Dosage: 20 UG, DAILY (1/D)
     Route: 058
     Dates: start: 20081205, end: 20090911
  2. IRON [Concomitant]
  3. ANTIHYPERTENSIVES [Concomitant]
  4. ASPIRIN [Concomitant]
  5. CALCIMAGON [Concomitant]

REACTIONS (1)
  - MULTIPLE MYELOMA [None]
